FAERS Safety Report 16991310 (Version 2)
Quarter: 2019Q4

REPORT INFORMATION
  Report Type: Spontaneous
  Country: US (occurrence: US)
  Receive Date: 20191104
  Receipt Date: 20191113
  Transmission Date: 20200122
  Serious: No
  Sender: FDA-Public Use
  Company Number: US-BAUSCH-BL-2019-059812

PATIENT

DRUGS (1)
  1. PLENVU [Suspect]
     Active Substance: ASCORBIC ACID\POLYETHYLENE GLYCOL 3350\POTASSIUM CHLORIDE\SODIUM ASCORBATE\SODIUM CHLORIDE\SODIUM SULFATE
     Indication: BOWEL PREPARATION
     Dosage: TOOK TWICE AS LONG TO DRINK IT THAN INSTRUCTED; DRANK A LOT MORE WATER THAN INSTRUCTED
     Route: 048

REACTIONS (3)
  - Back pain [Unknown]
  - Wrong technique in product usage process [Unknown]
  - Pain in extremity [Unknown]
